FAERS Safety Report 19582458 (Version 7)
Quarter: 2022Q3

REPORT INFORMATION
  Report Type: Report from Study
  Country: US (occurrence: US)
  Receive Date: 20210720
  Receipt Date: 20220627
  Transmission Date: 20221026
  Serious: Yes (Other)
  Sender: FDA-Public Use
  Company Number: NVSC2021US153724

PATIENT
  Sex: Male

DRUGS (1)
  1. ENTRESTO [Suspect]
     Active Substance: SACUBITRIL\VALSARTAN
     Indication: Product used for unknown indication
     Dosage: 1 DOSAGE FORM, BID (97/103 MG)
     Route: 048
     Dates: start: 202006

REACTIONS (5)
  - Multiple sclerosis relapse [Unknown]
  - Asthenia [Unknown]
  - COVID-19 [Recovered/Resolved]
  - Dysstasia [Unknown]
  - Weight fluctuation [Unknown]
